FAERS Safety Report 4943126-6 (Version None)
Quarter: 2006Q1

REPORT INFORMATION
  Report Type: 
  Country: None (occurrence: None)
  Receive Date: 20060309
  Receipt Date: 20060303
  Transmission Date: 20060701
  Serious: Yes (Hospitalization)
  Sender: FDA-Public Use
  Company Number: 200610261BNE

PATIENT
  Age: 79 Year
  Sex: Male

DRUGS (5)
  1. ASPIRIN [Suspect]
     Dosage: 300 MG, TOTAL DAILY, ORAL
     Route: 048
     Dates: end: 20060222
  2. DICLOFENAC [Suspect]
     Indication: PAIN IN EXTREMITY
     Dosage: NI, BID, ORAL
     Route: 048
  3. METOPROLOL [Concomitant]
  4. SIMVASTATIN [Concomitant]
  5. IRBESARTAN [Concomitant]

REACTIONS (4)
  - BLOOD UREA INCREASED [None]
  - COLD SWEAT [None]
  - GASTROINTESTINAL HAEMORRHAGE [None]
  - HAEMOGLOBIN DECREASED [None]
